FAERS Safety Report 19349591 (Version 1)
Quarter: 2021Q2

REPORT INFORMATION
  Report Type: Spontaneous
  Country: US (occurrence: US)
  Receive Date: 20210531
  Receipt Date: 20210531
  Transmission Date: 20210717
  Serious: Yes (Other)
  Sender: FDA-Public Use
  Company Number: None

PATIENT
  Age: 69 Year
  Sex: Male
  Weight: 115.6 kg

DRUGS (1)
  1. INGREZZA [Suspect]
     Active Substance: VALBENAZINE
     Indication: BLEPHAROSPASM
     Dosage: ?          OTHER FREQUENCY:Q HS;?
     Route: 048
     Dates: start: 20210415, end: 20210528

REACTIONS (2)
  - Eye disorder [None]
  - Limb discomfort [None]

NARRATIVE: CASE EVENT DATE: 20210528
